FAERS Safety Report 9264526 (Version 2)
Quarter: 2013Q3

REPORT INFORMATION
  Report Type: Report from Study
  Country: PL (occurrence: PL)
  Receive Date: 20130501
  Receipt Date: 20130729
  Transmission Date: 20140515
  Serious: Yes (Hospitalization, Other)
  Sender: FDA-Public Use
  Company Number: PL-ROCHE-1217616

PATIENT
  Age: 87 Year
  Sex: Male

DRUGS (7)
  1. RITUXIMAB [Suspect]
     Indication: DIFFUSE LARGE B-CELL LYMPHOMA
     Route: 065
  2. CYCLOPHOSPHAMIDE [Concomitant]
     Dosage: ON DAY 1 AND 3
     Route: 042
     Dates: start: 201211
  3. PREDNISONE [Concomitant]
     Dosage: ON DAYS 1 AND 5
     Route: 048
     Dates: start: 201211
  4. PREDNISONE [Concomitant]
     Route: 065
  5. DOXORUBICIN [Concomitant]
     Route: 065
  6. VINBLASTINE [Concomitant]
     Route: 065
  7. DALTEPARIN [Concomitant]

REACTIONS (10)
  - Pulmonary embolism [Unknown]
  - Infection [Unknown]
  - Ventricular extrasystoles [Unknown]
  - Lung infection [Unknown]
  - Cor pulmonale acute [Unknown]
  - Dyspnoea [Unknown]
  - Lymphadenopathy [Unknown]
  - Disease progression [Unknown]
  - Chest pain [Unknown]
  - Infection [Unknown]
